FAERS Safety Report 5682255-9 (Version None)
Quarter: 2008Q1

REPORT INFORMATION
  Report Type: 
  Country: None (occurrence: None)
  Receive Date: 20080326
  Receipt Date: 20080326
  Transmission Date: 20080703
  Serious: No
  Sender: FDA-Public Use
  Company Number: None

PATIENT
  Age: 52 Year
  Sex: Female

DRUGS (1)
  1. TOPROL-XL [Suspect]
     Indication: PALPITATIONS
     Dosage: 2.5 MG QD PO
     Route: 048
     Dates: start: 20060627

REACTIONS (3)
  - LICHENIFICATION [None]
  - MUCOSAL INFLAMMATION [None]
  - ULCER [None]
